FAERS Safety Report 8486830-8 (Version None)
Quarter: 2012Q3

REPORT INFORMATION
  Report Type: 
  Country: None (occurrence: None)
  Receive Date: 20120704
  Receipt Date: 20120625
  Transmission Date: 20120928
  Serious: Yes (Hospitalization)
  Sender: FDA-Public Use
  Company Number: CA-BRISTOL-MYERS SQUIBB COMPANY-16714594

PATIENT
  Age: 63 Year
  Sex: Female

DRUGS (2)
  1. ORENCIA [Suspect]
     Route: 042
     Dates: start: 20110701
  2. PREDNISONE [Suspect]

REACTIONS (2)
  - PATHOLOGICAL FRACTURE [None]
  - URINARY TRACT INFECTION [None]
